FAERS Safety Report 10066619 (Version 2)
Quarter: 2014Q2

REPORT INFORMATION
  Report Type: Spontaneous
  Country: US (occurrence: US)
  Receive Date: 20140408
  Receipt Date: 20140626
  Transmission Date: 20141212
  Serious: Yes (Hospitalization)
  Sender: FDA-Public Use
  Company Number: US-FRI-1000066176

PATIENT
  Age: 69 Year
  Sex: Male
  Weight: 109 kg

DRUGS (24)
  1. DALIRESP [Suspect]
     Indication: CHRONIC OBSTRUCTIVE PULMONARY DISEASE
     Dosage: 500MCG
     Route: 048
     Dates: start: 201403, end: 20140404
  2. COREG [Concomitant]
     Dosage: 12.5MG
     Route: 048
  3. SYMBICORT [Concomitant]
     Indication: CHRONIC OBSTRUCTIVE PULMONARY DISEASE
     Dosage: TWO PUFFS BY INHALATION TWO TIMES PER DAY
  4. ASPIRIN [Concomitant]
     Dosage: 162MG
     Route: 048
  5. ALBUTEROL SULFATE [Concomitant]
     Indication: CHRONIC OBSTRUCTIVE PULMONARY DISEASE
     Dosage: DAILY
  6. FLEXERIL [Concomitant]
     Dosage: 20MG
  7. LASIX [Concomitant]
     Dosage: 80MG
  8. GABAPENTIN [Concomitant]
     Dosage: 300MG NIGHTLY
     Route: 048
  9. NOVOLOG [Concomitant]
     Dosage: SLIDING SCALE
     Route: 058
  10. LEVEMIR [Concomitant]
     Dosage: 20 UNITS BID
     Route: 058
  11. IMDUR [Concomitant]
     Dosage: 60MG
  12. NITROGLYCERIN [Concomitant]
     Indication: CHEST PAIN
     Dosage: AS NEEDED
  13. PERCOCET [Concomitant]
     Indication: PAIN
     Dosage: ONE TABLET EVERY 8 HOURS AS NEEDED
  14. K-DUR [Concomitant]
     Dosage: 10MEQ
     Route: 048
  15. ALDACTONE [Concomitant]
     Dosage: 25MG
  16. SPIRIVA [Concomitant]
     Dosage: 18MCG
  17. KENALOG [Concomitant]
     Indication: ECZEMA
     Dosage: PRN
     Route: 061
  18. VASOTEC [Concomitant]
     Indication: HYPERTENSION
     Dosage: 2.5MG
  19. ALPHAGAN [Concomitant]
     Dosage: INSTILL 1 DROP INTO LEFT EYE EVERY 8 HRS
     Route: 047
  20. AMIODARONE [Concomitant]
     Dosage: 200MG
     Route: 048
  21. DOCUSATE SODIUM [Concomitant]
     Dosage: TAKE 1 CAPSULE BY ORAL ROUTE 2 TIMES PER DAY AS NEEDED
     Route: 048
  22. MUCINEX [Concomitant]
     Dosage: 1200MG
     Route: 048
  23. SIMVASTATIN [Concomitant]
     Route: 048
  24. XALATAN [Concomitant]
     Dosage: INSTILL 1 DROP IN AFFECTED EYE 2 TIMES A DAY
     Route: 047

REACTIONS (1)
  - Cardiac arrest [Recovered/Resolved]
